FAERS Safety Report 9849114 (Version 2)
Quarter: 2014Q1

REPORT INFORMATION
  Report Type: Spontaneous
  Country: US (occurrence: US)
  Receive Date: 20140128
  Receipt Date: 20140205
  Transmission Date: 20141002
  Serious: No
  Sender: FDA-Public Use
  Company Number: US-009507513-1401USA004961

PATIENT
  Age: 71 Year
  Sex: Female
  Weight: 49.89 kg

DRUGS (9)
  1. CLARITIN-D-24 [Suspect]
     Indication: SINUSITIS
     Dosage: 10 MG, QD
     Route: 048
     Dates: start: 20140106, end: 20140110
  2. CLARITIN-D-24 [Suspect]
     Indication: HYPERSENSITIVITY
  3. TYLENOL [Concomitant]
     Indication: FIBROMYALGIA
     Dosage: UNK, UNKNOWN
  4. TYLENOL [Concomitant]
     Indication: OSTEOPOROSIS
  5. LEVOTHYROXINE SODIUM [Concomitant]
     Indication: HYPOTHYROIDISM
     Dosage: UNK, UNKNOWN
  6. OMEPRAZOLE [Concomitant]
     Indication: GASTROOESOPHAGEAL REFLUX DISEASE
     Dosage: UNK, UNKNOWN
  7. OMEPRAZOLE [Concomitant]
     Indication: HIATUS HERNIA
  8. PEPTO-BISMOL [Concomitant]
     Indication: COLITIS ISCHAEMIC
     Dosage: UNK, UNKNOWN
  9. ZOFRAN [Concomitant]
     Indication: COLITIS ISCHAEMIC
     Dosage: UNK, UNKNOWN

REACTIONS (2)
  - Off label use [Unknown]
  - Drug ineffective [Unknown]
